FAERS Safety Report 7042165-1 (Version None)
Quarter: 2010Q4

REPORT INFORMATION
  Report Type: 
  Country: None (occurrence: None)
  Receive Date: 20101013
  Receipt Date: 20091203
  Transmission Date: 20110411
  Serious: No
  Sender: FDA-Public Use
  Company Number: US-ASTRAZENECA-2009SE30185

PATIENT
  Age: 72 Year
  Sex: Male
  Weight: 94.3 kg

DRUGS (10)
  1. SYMBICORT [Suspect]
     Indication: BRONCHITIS
     Dosage: 80/4.5, 2 PUFFS BID
     Route: 055
     Dates: start: 20091101
  2. SYMBICORT [Suspect]
     Dosage: 2 PUFFS, QD
     Route: 055
  3. SYMBICORT [Suspect]
     Dosage: 320 MCG  BID
     Route: 055
  4. CELEBREX [Concomitant]
  5. HYDROCHLOROTHIAZIDE [Concomitant]
  6. DIOVAN [Concomitant]
  7. ALPRAZOLAM [Concomitant]
  8. FAMOTIDINE [Concomitant]
  9. PREDNISONE [Concomitant]
  10. PROAIR HFA [Concomitant]

REACTIONS (2)
  - DIARRHOEA [None]
  - SECRETION DISCHARGE [None]
